FAERS Safety Report 23028988 (Version 1)
Quarter: 2023Q4

REPORT INFORMATION
  Report Type: Spontaneous
  Country: US (occurrence: None)
  Receive Date: 20231004
  Receipt Date: 20231004
  Transmission Date: 20240109
  Serious: Yes (Hospitalization, Other)
  Sender: FDA-Public Use
  Company Number: 2023A223398

PATIENT
  Age: 76 Year
  Sex: Female
  Weight: 74.8 kg

DRUGS (23)
  1. CRESTOR [Suspect]
     Active Substance: ROSUVASTATIN CALCIUM
     Route: 048
  2. KORLYM [Suspect]
     Active Substance: MIFEPRISTONE
     Indication: Cushing^s syndrome
     Route: 048
     Dates: start: 20230802
  3. KORLYM [Suspect]
     Active Substance: MIFEPRISTONE
     Indication: Cushing^s syndrome
     Route: 048
     Dates: start: 20230817, end: 202308
  4. KORLYM [Suspect]
     Active Substance: MIFEPRISTONE
     Indication: Cushing^s syndrome
     Dosage: 300MG ALT WITH 600MG,
     Route: 048
     Dates: start: 202308
  5. CLOBETASOL [Concomitant]
     Active Substance: CLOBETASOL
  6. FLONASE [Concomitant]
     Active Substance: FLUTICASONE PROPIONATE
  7. ALPHAGAN P [Concomitant]
     Active Substance: BRIMONIDINE TARTRATE
  8. ROCALTROL [Concomitant]
     Active Substance: CALCITRIOL
  9. ASPIRIN [Concomitant]
     Active Substance: ASPIRIN
  10. VITAMIN D [Concomitant]
     Active Substance: VITAMIN D NOS
  11. INVOKANA [Concomitant]
     Active Substance: CANAGLIFLOZIN
  12. ZETIA [Concomitant]
     Active Substance: EZETIMIBE
  13. SLOW IRON [Concomitant]
  14. PROTONIX [Concomitant]
     Active Substance: PANTOPRAZOLE SODIUM
  15. ZINC GLUCONATE [Concomitant]
     Active Substance: ZINC GLUCONATE
  16. AMBIEN [Concomitant]
     Active Substance: ZOLPIDEM TARTRATE
  17. NEBIVOLOL [Concomitant]
     Active Substance: NEBIVOLOL
  18. ROSUVASTATIN [Concomitant]
     Active Substance: ROSUVASTATIN
  19. LOSARTAN [Concomitant]
     Active Substance: LOSARTAN
  20. FUROSEMIDE [Concomitant]
     Active Substance: FUROSEMIDE
  21. PROLIA [Concomitant]
     Active Substance: DENOSUMAB
  22. MOUNJARO [Concomitant]
     Active Substance: TIRZEPATIDE
  23. VITAMIN B12 [Concomitant]
     Active Substance: CYANOCOBALAMIN

REACTIONS (14)
  - Blood creatinine increased [Recovering/Resolving]
  - Gait disturbance [Not Recovered/Not Resolved]
  - Asthenia [Not Recovered/Not Resolved]
  - Rhabdomyolysis [Unknown]
  - Muscular weakness [Not Recovered/Not Resolved]
  - Nausea [Recovering/Resolving]
  - Hypophagia [Not Recovered/Not Resolved]
  - Swelling [Recovering/Resolving]
  - Fatigue [Not Recovered/Not Resolved]
  - Pain [Unknown]
  - Decreased appetite [Unknown]
  - Dizziness [Unknown]
  - Headache [Unknown]
  - Pain in extremity [Unknown]
